FAERS Safety Report 26142128 (Version 1)
Quarter: 2025Q4

REPORT INFORMATION
  Report Type: Spontaneous
  Country: US (occurrence: None)
  Receive Date: 20251210
  Receipt Date: 20251210
  Transmission Date: 20260118
  Serious: No
  Sender: ALKERMES
  Company Number: US-ALKERMES INC.-ALK-2025-003174

PATIENT
  Age: 35 Year
  Sex: Female

DRUGS (1)
  1. VIVITROL [Suspect]
     Active Substance: NALTREXONE
     Indication: Product used for unknown indication
     Dosage: 380 MILLIGRAM, QMO

REACTIONS (4)
  - Product solubility abnormal [Recovered/Resolved]
  - Product physical consistency issue [Recovered/Resolved]
  - Product colour issue [Recovered/Resolved]
  - Wrong technique in product usage process [Recovered/Resolved]

NARRATIVE: CASE EVENT DATE: 20251125
